FAERS Safety Report 7458461-X (Version None)
Quarter: 2011Q2

REPORT INFORMATION
  Report Type: 
  Country: None (occurrence: None)
  Receive Date: 20110504
  Receipt Date: 20110419
  Transmission Date: 20111010
  Serious: Yes (Death)
  Sender: FDA-Public Use
  Company Number: B0716928A

PATIENT
  Age: 44 Year
  Sex: Male

DRUGS (4)
  1. FLUDARABINE [Suspect]
  2. CAMPATH [Suspect]
  3. MELPHALAN [Suspect]
  4. CYCLOSPORINE [Concomitant]

REACTIONS (1)
  - INFECTION [None]
